FAERS Safety Report 7087201-1 (Version None)
Quarter: 2010Q4

REPORT INFORMATION
  Report Type: 
  Country: None (occurrence: None)
  Receive Date: 20101106
  Receipt Date: 20101029
  Transmission Date: 20110411
  Serious: No
  Sender: FDA-Public Use
  Company Number: US-WYE-H18495910

PATIENT
  Age: 69 Year
  Sex: Female
  Weight: 81.72 kg

DRUGS (2)
  1. ADVIL [Suspect]
     Indication: BACK PAIN
     Dosage: 3 CAPLETS AS NEEDED AS DIRECTED BY PHYSICIAN
     Route: 048
     Dates: start: 20090101, end: 20090101
  2. BUSPAR [Concomitant]

REACTIONS (1)
  - DRUG INEFFECTIVE [None]
